FAERS Safety Report 5074482-9 (Version None)
Quarter: 2006Q3

REPORT INFORMATION
  Report Type: 
  Country: None (occurrence: None)
  Receive Date: 20060803
  Receipt Date: 20060720
  Transmission Date: 20061208
  Serious: Yes (Hospitalization)
  Sender: FDA-Public Use
  Company Number: 012352

PATIENT
  Sex: Female

DRUGS (4)
  1. PRIALT [Suspect]
     Indication: BACK PAIN
     Dosage: SEE IMAGE
     Route: 037
     Dates: end: 20060706
  2. PRIALT [Suspect]
     Indication: BACK PAIN
     Dosage: SEE IMAGE
     Route: 037
     Dates: start: 20050525
  3. AVINZA [Concomitant]
  4. OXYCONTIN [Concomitant]

REACTIONS (2)
  - ANAEMIA [None]
  - CELLULITIS [None]
